FAERS Safety Report 24259638 (Version 1)
Quarter: 2024Q3

REPORT INFORMATION
  Report Type: Spontaneous
  Country: AU (occurrence: AU)
  Receive Date: 20240828
  Receipt Date: 20240828
  Transmission Date: 20241017
  Serious: Yes (Other)
  Sender: PFIZER
  Company Number: AU-PFM-2024-04697

PATIENT

DRUGS (4)
  1. BRAFTOVI [Suspect]
     Active Substance: ENCORAFENIB
     Indication: Colorectal cancer metastatic
     Dosage: UNK
     Route: 065
  2. BRAFTOVI [Suspect]
     Active Substance: ENCORAFENIB
     Indication: BRAF gene mutation
  3. CETUXIMAB [Suspect]
     Active Substance: CETUXIMAB
     Indication: BRAF gene mutation
     Dosage: UNK
     Route: 065
  4. CETUXIMAB [Suspect]
     Active Substance: CETUXIMAB
     Indication: Colorectal cancer metastatic

REACTIONS (1)
  - Neutropenia [Unknown]
